FAERS Safety Report 5030239-6 (Version None)
Quarter: 2006Q2

REPORT INFORMATION
  Report Type: 
  Country: None (occurrence: None)
  Receive Date: 20060620
  Receipt Date: 20060302
  Transmission Date: 20061013
  Serious: Yes (Other)
  Sender: FDA-Public Use
  Company Number: CH-ROCHE-440652

PATIENT
  Age: 65 Year
  Sex: Female
  Weight: 53 kg

DRUGS (5)
  1. BONIVA [Suspect]
     Indication: OSTEOPOROSIS
     Route: 048
     Dates: start: 20060120, end: 20060320
  2. STATINS [Concomitant]
     Dosage: DRUG NAME REPORTED AS ANTILIPEMIC DRUGS (STATINES).
     Route: 048
  3. TILCOTIL [Concomitant]
     Route: 048
  4. CALCIMAGON-D3 [Concomitant]
     Indication: OSTEOPOROSIS
     Route: 048
     Dates: start: 20051020
  5. XEFO [Concomitant]
     Route: 048
     Dates: start: 20051109

REACTIONS (3)
  - ARTHRALGIA [None]
  - JOINT EFFUSION [None]
  - SPONTANEOUS HAEMATOMA [None]
